FAERS Safety Report 5982588-2 (Version None)
Quarter: 2008Q4

REPORT INFORMATION
  Report Type: 
  Country: None (occurrence: None)
  Receive Date: 20081208
  Receipt Date: 20081129
  Transmission Date: 20090506
  Serious: Yes (Other)
  Sender: FDA-Public Use
  Company Number: PHHY2008DE30370

PATIENT
  Sex: Male

DRUGS (1)
  1. VOLTAREN [Suspect]
     Indication: BACK PAIN
     Dosage: 1X/DAY AS NEEDED
     Route: 048
     Dates: end: 20081101

REACTIONS (2)
  - BIPOLAR I DISORDER [None]
  - PSYCHOMOTOR HYPERACTIVITY [None]
